FAERS Safety Report 25444739 (Version 1)
Quarter: 2025Q2

REPORT INFORMATION
  Report Type: Report from Study
  Country: KR (occurrence: KR)
  Receive Date: 20250617
  Receipt Date: 20250617
  Transmission Date: 20250716
  Serious: Yes (Other)
  Sender: KARYOPHARM THERAPEUTICS
  Company Number: KR-ANTENGENE-20250603196

PATIENT
  Age: 62 Year
  Sex: Male
  Weight: 74.3 kg

DRUGS (14)
  1. SELINEXOR [Suspect]
     Active Substance: SELINEXOR
     Indication: Plasma cell myeloma
     Route: 048
     Dates: start: 20250313
  2. DEXAMETHASONE [Concomitant]
     Active Substance: DEXAMETHASONE
     Indication: Plasma cell myeloma
     Route: 048
     Dates: start: 20250313
  3. ALMAGEL-F [Concomitant]
     Indication: Prophylaxis
     Route: 048
     Dates: start: 20250313
  4. ONSERAN [Concomitant]
     Indication: Prophylaxis
     Route: 048
     Dates: start: 20250313
  5. MACPERAN [METOCLOPRAMIDE] [Concomitant]
     Indication: Prophylaxis
     Route: 048
     Dates: start: 20250313
  6. NALOXONE HYDROCHLORIDE\OXYCODONE HYDROCHLORIDE [Concomitant]
     Active Substance: NALOXONE HYDROCHLORIDE\OXYCODONE HYDROCHLORIDE
     Indication: Plasma cell myeloma
     Route: 048
     Dates: start: 202301
  7. NEURONTIN [Concomitant]
     Active Substance: GABAPENTIN
     Indication: Peripheral sensory neuropathy
     Route: 048
     Dates: start: 201810
  8. DULOCTIN [Concomitant]
     Indication: Peripheral sensory neuropathy
     Route: 048
     Dates: start: 201810
  9. ZOYLEX [ACICLOVIR] [Concomitant]
     Indication: Prophylaxis
     Route: 048
     Dates: start: 20250313
  10. SULFAMETHOXAZOLE\TRIMETHOPRIM [Concomitant]
     Active Substance: SULFAMETHOXAZOLE\TRIMETHOPRIM
     Indication: Prophylaxis
     Route: 048
     Dates: start: 20250313
  11. OXYCODONE HYDROCHLORIDE [Concomitant]
     Active Substance: OXYCODONE HYDROCHLORIDE
     Indication: Plasma cell myeloma
     Route: 048
     Dates: start: 202306
  12. URSODIOL [Concomitant]
     Active Substance: URSODIOL
     Indication: Hepatic cirrhosis
     Route: 048
     Dates: start: 2018
  13. LIVIDI [Concomitant]
     Indication: Hepatic cirrhosis
     Route: 048
     Dates: start: 202305
  14. AMITRIPTYLINE HYDROCHLORIDE [Concomitant]
     Active Substance: AMITRIPTYLINE HYDROCHLORIDE
     Indication: Benign prostatic hyperplasia
     Route: 048
     Dates: start: 20250109

REACTIONS (6)
  - Hepatocellular carcinoma [Recovering/Resolving]
  - Nausea [Recovered/Resolved]
  - Fatigue [Recovered/Resolved]
  - Vomiting [Recovered/Resolved]
  - Thrombocytopenia [Not Recovered/Not Resolved]
  - Decreased appetite [Recovered/Resolved]

NARRATIVE: CASE EVENT DATE: 20250320
